FAERS Safety Report 5014523-8 (Version None)
Quarter: 2006Q2

REPORT INFORMATION
  Report Type: 
  Country: None (occurrence: None)
  Receive Date: 20060531
  Receipt Date: 20060508
  Transmission Date: 20061013
  Serious: Yes (Hospitalization, Other)
  Sender: FDA-Public Use
  Company Number: AU-AVENTIS-200614975GDDC

PATIENT
  Age: 58 Year
  Sex: Male
  Weight: 85 kg

DRUGS (11)
  1. DOCETAXEL [Suspect]
     Indication: NEOPLASM MALIGNANT
     Route: 042
     Dates: start: 20060424, end: 20060424
  2. CISPLATIN [Suspect]
     Indication: NEOPLASM MALIGNANT
     Route: 042
     Dates: start: 20060424, end: 20060424
  3. FLUOROURACIL [Suspect]
     Indication: NEOPLASM MALIGNANT
     Route: 042
     Dates: start: 20060424
  4. NORVASC [Concomitant]
     Indication: ILL-DEFINED DISORDER
     Route: 048
  5. TIMOPTIC [Concomitant]
     Indication: ILL-DEFINED DISORDER
     Dosage: DOSE: 1 DROP EACH EYE
     Route: 047
     Dates: start: 19880101
  6. SLOW-K [Concomitant]
     Indication: ELECTROLYTE IMBALANCE
     Dosage: DOSE: 2 TABLETS
     Route: 048
     Dates: start: 20060424, end: 20060426
  7. SLOW-K [Concomitant]
     Dosage: DOSE: 1 TABLET
     Route: 048
     Dates: start: 20060426, end: 20060428
  8. SLOW-K [Concomitant]
     Dosage: DOSE: 2 TABLETS
     Route: 048
     Dates: start: 20060428
  9. DEXAMETHASONE TAB [Concomitant]
     Indication: PROPHYLAXIS
     Route: 048
     Dates: start: 20060424, end: 20060426
  10. DEXAMETHASONE TAB [Concomitant]
     Route: 048
     Dates: start: 20060426, end: 20060428
  11. MAXALAN [Concomitant]
     Indication: PROPHYLAXIS
     Dosage: DOSE: 10 MG TID
     Route: 048
     Dates: start: 20060424

REACTIONS (4)
  - BLADDER CATHETER REPLACEMENT [None]
  - CATHETER RELATED COMPLICATION [None]
  - DYSURIA [None]
  - URINARY RETENTION [None]
